FAERS Safety Report 4824583-2 (Version None)
Quarter: 2005Q4

REPORT INFORMATION
  Report Type: 
  Country: None (occurrence: None)
  Receive Date: 20051110
  Receipt Date: 20051026
  Transmission Date: 20060501
  Serious: Yes (Hospitalization)
  Sender: FDA-Public Use
  Company Number: PHBS2005JP15819

PATIENT
  Age: 72 Year
  Sex: Male

DRUGS (4)
  1. TEGRETOL [Suspect]
     Indication: EPILEPSY
     Dosage: 200 MG/DAY
     Route: 048
     Dates: start: 20031001
  2. NORVASC [Concomitant]
     Indication: HYPERTENSION
     Dosage: 2.5 MG/DAY
     Route: 048
     Dates: start: 19891101
  3. DEPAKENE [Suspect]
     Indication: EPILEPSY
     Dosage: 600 MG/DAY
     Route: 048
     Dates: start: 20031001
  4. TANATRIL [Concomitant]
     Dosage: 2.5 MG/DAY
     Route: 048
     Dates: start: 19891101

REACTIONS (11)
  - ACANTHOSIS [None]
  - GENERAL ANAESTHESIA [None]
  - GINGIVAL HYPERPLASIA [None]
  - GINGIVAL OPERATION [None]
  - GINGIVAL SWELLING [None]
  - GINGIVITIS [None]
  - MASTICATION DISORDER [None]
  - PURULENT DISCHARGE [None]
  - TOOTH DISORDER [None]
  - TOOTH EXTRACTION [None]
  - TOOTH IMPACTED [None]
